FAERS Safety Report 16551304 (Version 1)
Quarter: 2019Q3

REPORT INFORMATION
  Report Type: Spontaneous
  Country: US (occurrence: US)
  Receive Date: 20190529
  Receipt Date: 20190529
  Transmission Date: 20191004
  Serious: Yes (Hospitalization)
  Sender: FDA-Public Use
  Company Number: None

PATIENT
  Age: 63 Year
  Sex: Male

DRUGS (6)
  1. LOSARTAN POT [Concomitant]
     Active Substance: LOSARTAN POTASSIUM
  2. ONDANSETRON [Concomitant]
     Active Substance: ONDANSETRON
  3. OLAMZAPINE [Concomitant]
  4. CAPECITABINE 500 MG [Suspect]
     Active Substance: CAPECITABINE
     Route: 048
     Dates: start: 20181024
  5. AMLODIPINE [Concomitant]
     Active Substance: AMLODIPINE BESYLATE
  6. CAPECITABINE 150MG [Suspect]
     Active Substance: CAPECITABINE
     Indication: RECTAL CANCER
     Route: 048
     Dates: start: 20180325

REACTIONS (1)
  - Fatigue [None]
